FAERS Safety Report 9656519 (Version 1)
Quarter: 2013Q4

REPORT INFORMATION
  Report Type: Spontaneous
  Country: DE (occurrence: FR)
  Receive Date: 20131030
  Receipt Date: 20131030
  Transmission Date: 20140711
  Serious: Yes (Hospitalization)
  Sender: FDA-Public Use
  Company Number: US-MERZ PHARMACEUTICALS, LLC DRUG SAFETY-13MRZ-00171

PATIENT
  Age: 43 Year
  Sex: Female

DRUGS (2)
  1. AETHOXYSKLEROL [Suspect]
     Indication: VARICOSE VEIN
     Route: 042
     Dates: start: 20130313, end: 20130313
  2. FLAGYL [Suspect]
     Indication: TOOTH INFECTION
     Dosage: 500MG
     Route: 048
     Dates: start: 20130223, end: 20130228

REACTIONS (1)
  - Immune thrombocytopenic purpura [Not Recovered/Not Resolved]
